FAERS Safety Report 9305791 (Version 1)
Quarter: 2013Q2

REPORT INFORMATION
  Report Type: Spontaneous
  Country: US (occurrence: US)
  Receive Date: 20130523
  Receipt Date: 20130523
  Transmission Date: 20140414
  Serious: No
  Sender: FDA-Public Use
  Company Number: US-PFIZER INC-2013154375

PATIENT
  Sex: Male

DRUGS (1)
  1. VFEND [Suspect]
     Dosage: UNK
     Dates: start: 201305

REACTIONS (4)
  - Skin wrinkling [Unknown]
  - Burning sensation [Unknown]
  - Local swelling [Unknown]
  - Pain in extremity [Unknown]
